FAERS Safety Report 16072870 (Version 1)
Quarter: 2019Q1

REPORT INFORMATION
  Report Type: Spontaneous
  Country: US (occurrence: US)
  Receive Date: 20190314
  Receipt Date: 20190314
  Transmission Date: 20190418
  Serious: Yes (Hospitalization, Other)
  Sender: FDA-Public Use
  Company Number: US-CASPER PHARMA LLC-2019CAS000092

PATIENT
  Age: 6 Year
  Sex: Male
  Weight: 21.6 kg

DRUGS (3)
  1. VITAMIN B12 [Concomitant]
     Active Substance: CYANOCOBALAMIN
     Indication: AUTISM SPECTRUM DISORDER
     Dosage: TWICE PER WEEK
     Route: 065
  2. VITAMIN E [Concomitant]
     Active Substance: .ALPHA.-TOCOPHEROL
     Indication: AUTISM SPECTRUM DISORDER
     Route: 065
  3. VITAMIN A PALMITATE [Suspect]
     Active Substance: VITAMIN A PALMITATE
     Indication: AUTISM SPECTRUM DISORDER
     Dosage: 30000 INTERNATIONAL UNIT, QD
     Route: 065

REACTIONS (3)
  - Product use in unapproved indication [Unknown]
  - Hypervitaminosis A [Recovering/Resolving]
  - Hypercalcaemia [Recovering/Resolving]
